FAERS Safety Report 5021729-0 (Version None)
Quarter: 2006Q2

REPORT INFORMATION
  Report Type: 
  Country: None (occurrence: None)
  Receive Date: 20060605
  Receipt Date: 20060530
  Transmission Date: 20061013
  Serious: Yes (Hospitalization)
  Sender: FDA-Public Use
  Company Number: 200611961BCC

PATIENT
  Age: 60 Year
  Sex: Female
  Weight: 95.2554 kg

DRUGS (9)
  1. ASPIRIN [Suspect]
     Indication: CARDIOVASCULAR EVENT PROPHYLAXIS
     Dosage: 81 MG, QD, ORAL
     Route: 048
     Dates: start: 20010101
  2. ASPIRIN [Suspect]
     Indication: PROPHYLAXIS
     Dates: start: 20030101
  3. HEART MEDICATION [Concomitant]
  4. INDAPAMIDE [Concomitant]
  5. ZOCOR [Concomitant]
  6. COZAAR [Concomitant]
  7. TOPROL-XL [Concomitant]
  8. HUMALOG [Concomitant]
  9. SPIRONOLACTONE [Concomitant]

REACTIONS (2)
  - DIABETES MELLITUS [None]
  - HYPERTENSION [None]
